FAERS Safety Report 26018779 (Version 3)
Quarter: 2025Q4

REPORT INFORMATION
  Report Type: Spontaneous
  Country: CN (occurrence: CN)
  Receive Date: 20251110
  Receipt Date: 20251120
  Transmission Date: 20260118
  Serious: Yes (Other)
  Sender: NOVARTIS
  Company Number: CN-002147023-NVSC2025CN170800

PATIENT
  Age: 58 Year
  Sex: Female
  Weight: 68 kg

DRUGS (6)
  1. SACUBITRIL\VALSARTAN [Suspect]
     Active Substance: SACUBITRIL\VALSARTAN
     Indication: Blood pressure increased
     Dosage: 100 MG, QD
     Route: 048
     Dates: start: 20250101, end: 20251029
  2. SACUBITRIL\VALSARTAN [Suspect]
     Active Substance: SACUBITRIL\VALSARTAN
     Indication: Symptomatic treatment
  3. ROSUVASTATIN [Suspect]
     Active Substance: ROSUVASTATIN
     Indication: Symptomatic treatment
     Dosage: 10 MG, QD (AT NIGHT)
     Route: 048
     Dates: start: 202501
  4. ROSUVASTATIN [Suspect]
     Active Substance: ROSUVASTATIN
     Indication: Symptomatic treatment
  5. METOPROLOL SUCCINATE [Suspect]
     Active Substance: METOPROLOL SUCCINATE
     Indication: Blood pressure increased
     Dosage: 47.5 MG, QD (SUSTAINED-RELEASE TABLETS )
     Route: 048
  6. METOPROLOL SUCCINATE [Suspect]
     Active Substance: METOPROLOL SUCCINATE
     Indication: Symptomatic treatment

REACTIONS (9)
  - Myocardial infarction [Recovered/Resolved]
  - Electrocardiogram Q wave abnormal [Recovered/Resolved]
  - Vulvovaginal pain [Recovered/Resolved]
  - Electrocardiogram abnormal [Recovered/Resolved]
  - Carotid intima-media thickness increased [Recovered/Resolved]
  - Arteriosclerosis [Recovered/Resolved]
  - Left atrial enlargement [Recovered/Resolved]
  - Blood pressure abnormal [Recovered/Resolved]
  - Eosinophil count increased [Recovered/Resolved]

NARRATIVE: CASE EVENT DATE: 20251001
